FAERS Safety Report 9859768 (Version 1)
Quarter: 2014Q1

REPORT INFORMATION
  Report Type: Spontaneous
  Country: US (occurrence: US)
  Receive Date: 20140131
  Receipt Date: 20140131
  Transmission Date: 20141002
  Serious: Yes (Death)
  Sender: FDA-Public Use
  Company Number: US-BRISTOL-MYERS SQUIBB COMPANY-20128294

PATIENT
  Sex: Male

DRUGS (2)
  1. BYETTA [Suspect]
     Dosage: UNTIL JUL-2011.
     Dates: start: 201006
  2. VICTOZA [Suspect]
     Dosage: UNTIL JUL-2011.
     Dates: start: 201006

REACTIONS (1)
  - Pancreatic carcinoma [Fatal]
